FAERS Safety Report 9054695 (Version 1)
Quarter: 2013Q1

REPORT INFORMATION
  Report Type: Spontaneous
  Country: US (occurrence: US)
  Receive Date: 20130208
  Receipt Date: 20130208
  Transmission Date: 20140127
  Serious: No
  Sender: FDA-Public Use
  Company Number: US-009507513-1302USA003098

PATIENT
  Sex: 0

DRUGS (3)
  1. ZETIA [Suspect]
     Route: 048
  2. ZOCOR [Suspect]
     Route: 048
  3. VYTORIN [Suspect]
     Route: 048

REACTIONS (1)
  - Nausea [Recovered/Resolved]
